FAERS Safety Report 19944255 (Version 2)
Quarter: 2021Q4

REPORT INFORMATION
  Report Type: Spontaneous
  Country: US (occurrence: US)
  Receive Date: 20211011
  Receipt Date: 20211123
  Transmission Date: 20220303
  Serious: Yes (Other)
  Sender: FDA-Public Use
  Company Number: US-009507513-2110USA000890

PATIENT
  Sex: Male

DRUGS (12)
  1. STROMECTOL [Suspect]
     Active Substance: IVERMECTIN
     Dosage: UNK
     Dates: start: 20210510
  2. STROMECTOL [Suspect]
     Active Substance: IVERMECTIN
     Dosage: 1 TABLET, EVERY 20 DAYS
  3. STROMECTOL [Suspect]
     Active Substance: IVERMECTIN
     Dosage: ONCE DAILY
  4. STROMECTOL [Suspect]
     Active Substance: IVERMECTIN
     Dosage: 1 TABLET, EVERY 7 DAYS
  5. STROMECTOL [Suspect]
     Active Substance: IVERMECTIN
     Dosage: 6 TABLETS EVERY 2 WEEKS
  6. DOXYCYCLINE [Suspect]
     Active Substance: DOXYCYCLINE
     Dosage: 100 MILLIGRAM, DAILY
  7. DOXYCYCLINE [Suspect]
     Active Substance: DOXYCYCLINE
     Dosage: 100 MG DAILY
  8. DOXYCYCLINE [Suspect]
     Active Substance: DOXYCYCLINE
     Dosage: 300 MG DAILY
  9. AMOXICILLIN [Suspect]
     Active Substance: AMOXICILLIN
  10. MUPIROCIN [Suspect]
     Active Substance: MUPIROCIN
     Indication: Skin infection
  11. KEFLEX [Suspect]
     Active Substance: CEPHALEXIN
  12. CLINDAMYCIN [Suspect]
     Active Substance: CLINDAMYCIN

REACTIONS (12)
  - Hydrocephalus [Recovering/Resolving]
  - Arthritis [Recovering/Resolving]
  - Pyrexia [Recovering/Resolving]
  - Blood cholesterol increased [Recovering/Resolving]
  - White blood cell count abnormal [Recovering/Resolving]
  - Blood iron decreased [Recovering/Resolving]
  - Vitamin D decreased [Recovering/Resolving]
  - Fatigue [Recovering/Resolving]
  - Feeling abnormal [Recovering/Resolving]
  - Weight decreased [Recovering/Resolving]
  - Carpal tunnel syndrome [Recovered/Resolved]
  - Intentional product misuse [Unknown]

NARRATIVE: CASE EVENT DATE: 20210101
